FAERS Safety Report 9946469 (Version 1)
Quarter: 2014Q1

REPORT INFORMATION
  Report Type: Report from Study
  Country: US (occurrence: US)
  Receive Date: 20140303
  Receipt Date: 20140303
  Transmission Date: 20141002
  Serious: No
  Sender: FDA-Public Use
  Company Number: US-ABBVIE-13P-163-1063213-00

PATIENT
  Age: 38 Year
  Sex: Male

DRUGS (6)
  1. HUMIRA [Suspect]
  2. NEXIUM [Concomitant]
     Indication: GASTROOESOPHAGEAL REFLUX DISEASE
  3. CELEXA [Concomitant]
     Indication: MENTAL IMPAIRMENT
     Dosage: 1 DAILY
  4. ZINC [Concomitant]
     Indication: PRODUCT USED FOR UNKNOWN INDICATION
  5. ECHINACEA [Concomitant]
     Indication: PRODUCT USED FOR UNKNOWN INDICATION
  6. MEGAMAN VITAMIN [Concomitant]
     Indication: PRODUCT USED FOR UNKNOWN INDICATION

REACTIONS (1)
  - Injection site pain [Recovered/Resolved]
